FAERS Safety Report 16259861 (Version 1)
Quarter: 2019Q2

REPORT INFORMATION
  Report Type: Spontaneous
  Country: US (occurrence: US)
  Receive Date: 20190430
  Receipt Date: 20190430
  Transmission Date: 20190711
  Serious: No
  Sender: FDA-Public Use
  Company Number: None

PATIENT
  Age: 21 Year
  Sex: Female
  Weight: 48.6 kg

DRUGS (1)
  1. MONISTAT 3 3-DAY PRE-FILLED APPLICATORS [Suspect]
     Active Substance: MICONAZOLE NITRATE
     Indication: FUNGAL INFECTION
     Dosage: ?          QUANTITY:3 CREAM SYRINGE;?
     Route: 067

REACTIONS (2)
  - Application site pain [None]
  - Insomnia [None]

NARRATIVE: CASE EVENT DATE: 20190425
